FAERS Safety Report 20731828 (Version 1)
Quarter: 2022Q2

REPORT INFORMATION
  Report Type: Spontaneous
  Country: US (occurrence: US)
  Receive Date: 20220420
  Receipt Date: 20220420
  Transmission Date: 20220721
  Serious: No
  Sender: FDA-Public Use
  Company Number: US-GILEAD-2022-0578383

PATIENT
  Sex: Male

DRUGS (5)
  1. HARVONI [Suspect]
     Active Substance: LEDIPASVIR\SOFOSBUVIR
     Indication: Chronic hepatitis C
     Dosage: 1 DOSAGE FORM, QD
     Route: 048
     Dates: start: 20220328
  2. ASCORBIC ACID\BIOFLAVONOIDS [Concomitant]
     Active Substance: ASCORBIC ACID\BIOFLAVONOIDS
  3. VITAMINS [Concomitant]
     Active Substance: VITAMINS
  4. NIFEDIPINE [Concomitant]
     Active Substance: NIFEDIPINE
  5. BERBERINE COMPLEX [Concomitant]

REACTIONS (1)
  - Nasopharyngitis [Recovering/Resolving]
